FAERS Safety Report 18044201 (Version 2)
Quarter: 2020Q3

REPORT INFORMATION
  Report Type: Spontaneous
  Country: IE (occurrence: IE)
  Receive Date: 20200720
  Receipt Date: 20200731
  Transmission Date: 20201103
  Serious: Yes (Disabling)
  Sender: FDA-Public Use
  Company Number: IE-NOVOPROD-740131

PATIENT
  Age: 61 Year
  Sex: Female
  Weight: 79 kg

DRUGS (2)
  1. GLUCOPHAGE [Concomitant]
     Active Substance: METFORMIN HYDROCHLORIDE
     Indication: TYPE 2 DIABETES MELLITUS
     Dosage: 500 MG, BID
     Route: 048
  2. OZEMPIC [Suspect]
     Active Substance: SEMAGLUTIDE
     Indication: TYPE 2 DIABETES MELLITUS
     Dosage: 1 MG, QW
     Route: 065
     Dates: start: 20190529

REACTIONS (7)
  - Adverse drug reaction [Recovered/Resolved]
  - Pruritus [Recovered/Resolved]
  - Vasodilatation [Recovered/Resolved]
  - Insomnia [Recovered/Resolved]
  - Peripheral swelling [Recovered/Resolved]
  - Erythema [Recovered/Resolved]
  - Burning sensation [Recovered/Resolved]
